FAERS Safety Report 18454603 (Version 2)
Quarter: 2020Q4

REPORT INFORMATION
  Report Type: Report from Study
  Country: BR (occurrence: BR)
  Receive Date: 20201103
  Receipt Date: 20201120
  Transmission Date: 20210114
  Serious: Yes (Other)
  Sender: FDA-Public Use
  Company Number: BR-AMGEN-BRANI2020118894

PATIENT
  Sex: Female

DRUGS (4)
  1. NORTRIPTYLINE [Suspect]
     Active Substance: NORTRIPTYLINE
     Indication: MIGRAINE
     Dosage: 1 DOSAGE FORM, QD QD (PER NIGHT) (STARTED 10 YEARS AGO)
     Route: 048
  2. ATENOLOL. [Suspect]
     Active Substance: ATENOLOL
     Indication: MIGRAINE
     Dosage: 1 DOSAGE FORM, QD PER NIGHT) (STARTED 10 YEARS AGO)
     Route: 048
  3. PASURTA [Suspect]
     Active Substance: ERENUMAB
     Dosage: UNK, QMO (AMPOULE) (EVERY 30 DAYS) QMO
     Route: 058
     Dates: start: 20200714, end: 20201015
  4. PASURTA [Suspect]
     Active Substance: ERENUMAB
     Indication: MIGRAINE
     Dosage: UNK UNK, QMO (AMPOULE)
     Route: 058
     Dates: start: 20200613

REACTIONS (5)
  - Migraine [Recovering/Resolving]
  - Feeling abnormal [Recovered/Resolved]
  - Headache [Unknown]
  - Product use in unapproved indication [Unknown]
  - Enuresis [Unknown]
